FAERS Safety Report 23103044 (Version 5)
Quarter: 2023Q4

REPORT INFORMATION
  Report Type: Report from Study
  Country: GR (occurrence: GR)
  Receive Date: 20231025
  Receipt Date: 20231129
  Transmission Date: 20240110
  Serious: Yes (Life-Threatening, Hospitalization, Other)
  Sender: FDA-Public Use
  Company Number: GR-BRISTOL-MYERS SQUIBB COMPANY-2023-126823

PATIENT
  Age: 54 Year
  Sex: Female
  Weight: 72.0 kg

DRUGS (5)
  1. NIVOLUMAB [Suspect]
     Active Substance: NIVOLUMAB
     Indication: Colorectal adenocarcinoma
     Route: 036
     Dates: start: 20230720, end: 20230720
  2. INVESTIGATIONAL PRODUCT [Suspect]
     Active Substance: INVESTIGATIONAL PRODUCT
     Indication: Colorectal adenocarcinoma
     Dosage: 1 X 10^6 PFU/ML, SINGLE, TOTAL VOLUME: 10 ML;
     Route: 036
     Dates: start: 20230523, end: 20230523
  3. INVESTIGATIONAL PRODUCT [Suspect]
     Active Substance: INVESTIGATIONAL PRODUCT
     Dosage: 1 X 10^6 PFU/ML, Q2W, TOTAL VOLUME: 10 ML;
     Route: 036
     Dates: start: 20230720, end: 20230928
  4. SEROQUEL [Concomitant]
     Active Substance: QUETIAPINE FUMARATE
     Indication: Anxiety
     Dates: start: 2020
  5. LANSOPRAZOLE [Concomitant]
     Active Substance: LANSOPRAZOLE
     Indication: Abdominal pain upper
     Dates: start: 2020

REACTIONS (1)
  - Diabetic ketoacidosis [Recovered/Resolved]

NARRATIVE: CASE EVENT DATE: 20230820
